FAERS Safety Report 8375585-3 (Version None)
Quarter: 2012Q1

REPORT INFORMATION
  Report Type: 
  Country: None (occurrence: None)
  Receive Date: 20120323
  Receipt Date: 20110216
  Transmission Date: 20120608
  Serious: Yes (Hospitalization)
  Sender: FDA-Public Use
  Company Number: 163-21880-11012640

PATIENT
  Age: 72 Year
  Sex: Male
  Weight: 68 kg

DRUGS (2)
  1. REVLIMID [Suspect]
     Indication: MULTIPLE MYELOMA
     Dosage: 25 MG, DAILY FOR 21 DAYS Q 28 DAYS, PO
     Route: 048
     Dates: start: 20100801
  2. DECADRON [Concomitant]

REACTIONS (3)
  - FALL [None]
  - FATIGUE [None]
  - ASTHENIA [None]
